FAERS Safety Report 9135157 (Version 1)
Quarter: 2013Q1

REPORT INFORMATION
  Report Type: Report from Study
  Country: US (occurrence: US)
  Receive Date: 20130304
  Receipt Date: 20130304
  Transmission Date: 20140127
  Serious: No
  Sender: FDA-Public Use
  Company Number: US-COVIDIEN/TYCO HEALTHCARE/MALLINCKRODT-T201203692

PATIENT
  Age: 86 Year
  Sex: Male
  Weight: 93.88 kg

DRUGS (3)
  1. RESTORIL [Suspect]
     Indication: SLEEP DISORDER
     Dosage: UNK
     Dates: start: 20121004
  2. RIVAROXABAN [Suspect]
     Indication: ATRIAL FIBRILLATION
     Dosage: 20 MG, QD
     Route: 048
     Dates: start: 20121004
  3. RIVAROXABAN [Suspect]
     Indication: CEREBROVASCULAR ACCIDENT PROPHYLAXIS

REACTIONS (1)
  - Faeces discoloured [Not Recovered/Not Resolved]
